FAERS Safety Report 17469240 (Version 2)
Quarter: 2020Q2

REPORT INFORMATION
  Report Type: Spontaneous
  Country: CA (occurrence: CA)
  Receive Date: 20200227
  Receipt Date: 20200402
  Transmission Date: 20200713
  Serious: Yes (Other)
  Sender: FDA-Public Use
  Company Number: NVSC2020CA055291

PATIENT
  Age: 76 Year
  Sex: Female

DRUGS (5)
  1. SANDOZ ROSUVASTATIN [Suspect]
     Active Substance: ROSUVASTATIN CALCIUM
     Dosage: 5 MG
     Route: 065
  2. PAXIL [Concomitant]
     Active Substance: PAROXETINE HYDROCHLORIDE
     Indication: PRODUCT USED FOR UNKNOWN INDICATION
     Dosage: 5 MG SINCE YEAR
     Route: 065
  3. A.S.A. [Concomitant]
     Indication: PRODUCT USED FOR UNKNOWN INDICATION
     Dosage: 80 MG SINCE A YEAR
     Route: 065
     Dates: start: 2019
  4. SANDOZ ROSUVASTATIN [Suspect]
     Active Substance: ROSUVASTATIN CALCIUM
     Indication: HYPERCHOLESTEROLAEMIA
     Dosage: 10 MG
     Route: 065
     Dates: start: 201904
  5. SANDOZ ROSUVASTATIN [Suspect]
     Active Substance: ROSUVASTATIN CALCIUM
     Dosage: 10 MG, QD
     Route: 065
     Dates: start: 20200321

REACTIONS (3)
  - Pain in extremity [Unknown]
  - Invasive ductal breast carcinoma [Unknown]
  - Musculoskeletal pain [Unknown]

NARRATIVE: CASE EVENT DATE: 201912
